FAERS Safety Report 8125978-4 (Version None)
Quarter: 2012Q1

REPORT INFORMATION
  Report Type: 
  Country: None (occurrence: None)
  Receive Date: 20120209
  Receipt Date: 20120130
  Transmission Date: 20120608
  Serious: Yes (Hospitalization)
  Sender: FDA-Public Use
  Company Number: US-NOVOPROD-343874

PATIENT
  Age: 45 Year
  Sex: Female
  Weight: 54.422 kg

DRUGS (3)
  1. HUMALOG [Suspect]
     Indication: TYPE 1 DIABETES MELLITUS
     Dosage: 25 U, TID
     Route: 058
     Dates: start: 20100101
  2. NEURONTIN [Concomitant]
     Indication: DIABETIC NEUROPATHY
  3. LEVEMIR [Suspect]
     Indication: TYPE 1 DIABETES MELLITUS
     Dosage: 25 U, QD AT NIGHT
     Route: 058
     Dates: start: 20100101

REACTIONS (2)
  - ABSCESS LIMB [None]
  - BLOOD GLUCOSE INCREASED [None]
